FAERS Safety Report 7753765-5 (Version None)
Quarter: 2011Q3

REPORT INFORMATION
  Report Type: 
  Country: None (occurrence: None)
  Receive Date: 20110915
  Receipt Date: 20110912
  Transmission Date: 20111222
  Serious: Yes (Other)
  Sender: FDA-Public Use
  Company Number: DE-ABBOTT-11P-062-0853926-00

PATIENT
  Sex: Male

DRUGS (3)
  1. HUMIRA [Suspect]
     Indication: CROHN'S DISEASE
     Route: 058
     Dates: start: 20110201
  2. SUMATRIPTAN SUCCINATE [Concomitant]
     Indication: MIGRAINE
     Dosage: OD
  3. PROPRA-RATIOPHARM [Concomitant]
     Indication: MIGRAINE
     Route: 048

REACTIONS (2)
  - CIRCULATORY COLLAPSE [None]
  - CARDIOVASCULAR DISORDER [None]
